FAERS Safety Report 8879276 (Version 2)
Quarter: 2013Q1

REPORT INFORMATION
  Report Type: Report from Study
  Country: DE (occurrence: DE)
  Receive Date: 20121031
  Receipt Date: 20130219
  Transmission Date: 20140127
  Serious: Yes (Hospitalization)
  Sender: FDA-Public Use
  Company Number: DE-BAXTER-2012BAX021066

PATIENT
  Age: 62 Year
  Sex: Female
  Weight: 66 kg

DRUGS (14)
  1. ENDOXAN [Suspect]
     Indication: BREAST CANCER
     Route: 042
     Dates: start: 20121004
  2. MESNA [Suspect]
     Indication: BREAST CANCER
     Route: 065
  3. PERTUZUMAB [Suspect]
     Indication: BREAST CANCER
     Route: 042
  4. TRASTUZUMAB [Suspect]
     Indication: BREAST CANCER
     Route: 042
  5. GRANISETRON HYDROCHLORIDE [Suspect]
     Indication: BREAST CANCER
     Route: 065
     Dates: start: 20121004
  6. EPIRUBICIN HYDROCHLORIDE [Suspect]
     Indication: BREAST CANCER
     Route: 042
     Dates: start: 20121004
  7. FLUOROURACIL [Suspect]
     Indication: BREAST CANCER
     Route: 042
     Dates: start: 20121004
  8. APREPITANT [Suspect]
     Indication: BREAST CANCER
     Route: 065
     Dates: start: 20121004, end: 20121006
  9. DEXAMETHASONE [Suspect]
     Indication: BREAST CANCER
     Route: 065
     Dates: start: 20121004, end: 20121008
  10. FLUTICASONE PROPIONATE [Concomitant]
     Indication: PRODUCT USED FOR UNKNOWN INDICATION
     Dosage: 1 HUB
     Route: 065
  11. CORTISONE ACETATE [Concomitant]
     Indication: PRODUCT USED FOR UNKNOWN INDICATION
     Route: 065
  12. LEVOTHYROXINE SODIUM [Concomitant]
     Indication: PRODUCT USED FOR UNKNOWN INDICATION
     Route: 065
  13. LORATADINE [Concomitant]
     Indication: PRODUCT USED FOR UNKNOWN INDICATION
     Route: 065
  14. MUPIROCIN [Concomitant]
     Indication: PRODUCT USED FOR UNKNOWN INDICATION
     Route: 065
     Dates: start: 20121004, end: 20121010

REACTIONS (1)
  - Pancreatitis [Recovered/Resolved]
